FAERS Safety Report 4368196-8 (Version None)
Quarter: 2004Q2

REPORT INFORMATION
  Report Type: 
  Country: None (occurrence: None)
  Receive Date: 20040527
  Receipt Date: 20040504
  Transmission Date: 20050107
  Serious: Yes (Hospitalization)
  Sender: FDA-Public Use
  Company Number: 2004-FF-00291FF

PATIENT
  Age: 57 Year
  Sex: Female

DRUGS (6)
  1. DUOVENT [Suspect]
     Indication: CHRONIC OBSTRUCTIVE AIRWAYS DISEASE
     Dosage: 3 PUFFS DAILY (NR) IH
     Route: 055
  2. COMBIVENT [Suspect]
     Indication: CHRONIC OBSTRUCTIVE AIRWAYS DISEASE
     Dosage: 2 PUFFS THREE TIMES DAILY (NR) IH
     Route: 055
  3. ATARAX (NR) [Concomitant]
  4. SOLUPRED (PREDNISOLONE SODIUM SULFOBENZOATE) (NR) [Concomitant]
  5. IMOVANE (ZOPICLONE) (TAK) [Concomitant]
  6. KETEK (TELITHROMYCIN) (NR) [Concomitant]

REACTIONS (9)
  - ASTHENIA [None]
  - CERVICAL SPINAL STENOSIS [None]
  - EPISTAXIS [None]
  - HYPERTHERMIA [None]
  - MUSCULAR WEAKNESS [None]
  - MYOPATHY [None]
  - PAIN IN EXTREMITY [None]
  - PARESIS [None]
  - THROMBOCYTOPENIA [None]
